FAERS Safety Report 19258918 (Version 1)
Quarter: 2021Q2

REPORT INFORMATION
  Report Type: Spontaneous
  Country: US (occurrence: US)
  Receive Date: 20210514
  Receipt Date: 20210514
  Transmission Date: 20210717
  Serious: No
  Sender: FDA-Public Use
  Company Number: US-BAYER-2021-140345

PATIENT
  Sex: Female

DRUGS (1)
  1. KYLEENA [Suspect]
     Active Substance: LEVONORGESTREL
     Indication: CONTRACEPTION
     Dosage: 17.5  ?G PER DAY CONTINUOUSLY
     Route: 015
     Dates: start: 2020

REACTIONS (5)
  - Alopecia [Not Recovered/Not Resolved]
  - Amenorrhoea [Not Recovered/Not Resolved]
  - Arthralgia [None]
  - Rash [None]
  - Urticaria [None]

NARRATIVE: CASE EVENT DATE: 2020
